FAERS Safety Report 14404122 (Version 2)
Quarter: 2018Q1

REPORT INFORMATION
  Report Type: Spontaneous
  Country: US (occurrence: US)
  Receive Date: 20180117
  Receipt Date: 20180214
  Transmission Date: 20180509
  Serious: No
  Sender: FDA-Public Use
  Company Number: US-PFIZER INC-2018021089

PATIENT
  Age: 62 Year
  Sex: Female

DRUGS (3)
  1. EUCRISA [Suspect]
     Active Substance: CRISABOROLE
     Indication: ROSACEA
  2. EUCRISA [Suspect]
     Active Substance: CRISABOROLE
     Indication: ROSACEA
     Dosage: UNK, 2X/DAY (TO BE APPLIED TO AFFECTED AREAS ON FACE)
     Route: 061
  3. EUCRISA [Suspect]
     Active Substance: CRISABOROLE
     Indication: DERMATITIS ATOPIC
     Dosage: UNK, DAILY
     Route: 061

REACTIONS (1)
  - Paraesthesia [Unknown]
